FAERS Safety Report 9538719 (Version 2)
Quarter: 2013Q4

REPORT INFORMATION
  Report Type: Spontaneous
  Country: US (occurrence: None)
  Receive Date: 20130917
  Receipt Date: 20131024
  Transmission Date: 20140711
  Serious: Yes (Other)
  Sender: FDA-Public Use
  Company Number: ACO_38447_2013

PATIENT
  Age: 73 Year
  Sex: Female

DRUGS (4)
  1. AMPYRA [Suspect]
     Indication: PRODUCT USED FOR UNKNOWN INDICATION
     Dates: start: 20100715
  2. ONGLYZA (SAXAGLIPTIN HYDROCHLORIDE) [Concomitant]
  3. OXYBUTYNIN CHLORIDE (OXYBUTYNIN HYDROCHLORIDE) [Concomitant]
  4. BACLOFEN (BACLOFEN) [Concomitant]

REACTIONS (4)
  - Fall [None]
  - Urinary tract infection [None]
  - Multiple sclerosis [None]
  - Condition aggravated [None]
